FAERS Safety Report 16646038 (Version 2)
Quarter: 2019Q3

REPORT INFORMATION
  Report Type: Spontaneous
  Country: ES (occurrence: ES)
  Receive Date: 20190730
  Receipt Date: 20190924
  Transmission Date: 20191004
  Serious: Yes (Death, Hospitalization)
  Sender: FDA-Public Use
  Company Number: ES-ROCHE-2364648

PATIENT
  Age: 83 Year
  Sex: Female
  Weight: 70 kg

DRUGS (10)
  1. FUROSEMIDE. [Concomitant]
     Active Substance: FUROSEMIDE
     Route: 065
  2. ALENDRONIC ACID [Concomitant]
     Active Substance: ALENDRONIC ACID
     Route: 065
  3. OMEPRAZOLE. [Concomitant]
     Active Substance: OMEPRAZOLE
     Route: 065
  4. FENTANYL. [Concomitant]
     Active Substance: FENTANYL
     Route: 065
  5. ROACTEMRA [Suspect]
     Active Substance: TOCILIZUMAB
     Indication: RHEUMATOID ARTHRITIS
     Route: 058
     Dates: start: 20190509, end: 20190717
  6. PREDNISONE. [Concomitant]
     Active Substance: PREDNISONE
     Indication: RHEUMATOID ARTHRITIS
     Route: 048
     Dates: start: 20130101, end: 20190717
  7. ENALAPRIL [Concomitant]
     Active Substance: ENALAPRIL
     Route: 065
  8. METAMIZOLE [Concomitant]
     Active Substance: METAMIZOLE
     Route: 065
  9. LACTULOSE. [Concomitant]
     Active Substance: LACTULOSE
     Route: 065
  10. PENTOXIFYLLINE. [Concomitant]
     Active Substance: PENTOXIFYLLINE
     Route: 065

REACTIONS (1)
  - Ischaemia [Fatal]

NARRATIVE: CASE EVENT DATE: 20190717
